FAERS Safety Report 7872446 (Version 4)
Quarter: 2013Q4

REPORT INFORMATION
  Report Type: Spontaneous
  Country: GR (occurrence: GR)
  Receive Date: 20110325
  Receipt Date: 20131031
  Transmission Date: 20140711
  Serious: Yes (Hospitalization)
  Sender: FDA-Public Use
  Company Number: GR-009507513-1103GRC00001

PATIENT
  Age: 80 Year
  Sex: Female

DRUGS (5)
  1. JANUMET [Suspect]
     Indication: TYPE 2 DIABETES MELLITUS
     Dosage: 1000-50 MG, BID
     Route: 048
     Dates: start: 200911, end: 20100407
  2. ACCURETIC [Concomitant]
     Indication: HYPERTENSION
     Route: 048
  3. NEUROBION [Concomitant]
  4. ZOLOFT [Concomitant]
     Route: 048
  5. HYDROCHLOROTHIAZIDE [Concomitant]
     Indication: HYPERTENSION
     Route: 048

REACTIONS (1)
  - Pemphigoid [Recovered/Resolved]
